FAERS Safety Report 8590354-7 (Version None)
Quarter: 2012Q3

REPORT INFORMATION
  Report Type: 
  Country: None (occurrence: None)
  Receive Date: 20120813
  Receipt Date: 20120807
  Transmission Date: 20120928
  Serious: Yes (Other)
  Sender: FDA-Public Use
  Company Number: US-PFIZER INC-2012193339

PATIENT
  Age: 60 Year
  Sex: Female

DRUGS (17)
  1. LIPITOR [Suspect]
     Dosage: 80 MG, 1 TABLET(S) DAILY
     Route: 048
  2. ZETIA [Concomitant]
     Dosage: 10MG DAILY
     Route: 048
  3. NOVOLOG [Concomitant]
     Dosage: UNK
  4. POTASSIUM CHLORIDE [Concomitant]
     Dosage: 40MEQ, DAILY
     Route: 048
  5. ZYRTEC [Concomitant]
     Dosage: UNK
  6. PROZAC [Concomitant]
     Dosage: 60MG DAILY
     Route: 048
  7. NITROSTAT [Suspect]
     Dosage: 0.4 MG, AS NEEDED
     Route: 060
  8. PROCARDIA XL [Suspect]
     Dosage: 90 MG, 1 TABLET(S)  DAILY
     Route: 048
  9. LISINOPRIL [Concomitant]
     Dosage: 40 MG, 1X/DAY
     Route: 048
  10. ACTONEL [Concomitant]
     Dosage: 150MG Q MONTH
     Route: 048
  11. WELLBUTRIN SR [Concomitant]
     Dosage: 100 MG, 2X/DAY
     Route: 048
  12. FLEXERIL [Concomitant]
     Dosage: 10MG EVERY 8 HRS PRN
  13. ISMO [Concomitant]
     Dosage: 40 MG, 3X/DAY
     Route: 048
  14. XANAX [Suspect]
     Dosage: 1 MG, 3X/DAY
     Route: 048
  15. LITHIUM CARBONATE [Concomitant]
     Dosage: 600 MG, 1X/DAY
     Route: 048
  16. NEURONTIN [Suspect]
     Dosage: 300 MG, 2X/DAY
     Route: 048
  17. CYMBALTA [Concomitant]
     Dosage: 30MG DAILY
     Route: 048

REACTIONS (12)
  - ARTERIOSCLEROSIS [None]
  - PANIC ATTACK [None]
  - ANGINA PECTORIS [None]
  - CORONARY ARTERY DISEASE [None]
  - DIABETIC NEUROPATHY [None]
  - DEPRESSION [None]
  - GASTROOESOPHAGEAL REFLUX DISEASE [None]
  - TYPE V HYPERLIPIDAEMIA [None]
  - OSTEOPOROSIS [None]
  - BACK PAIN [None]
  - OSTEOARTHRITIS [None]
  - ESSENTIAL HYPERTENSION [None]
